FAERS Safety Report 7647426-0 (Version None)
Quarter: 2011Q3

REPORT INFORMATION
  Report Type: 
  Country: None (occurrence: None)
  Receive Date: 20110729
  Receipt Date: 20110729
  Transmission Date: 20111222
  Serious: Yes (Life-Threatening, Hospitalization, Other)
  Sender: FDA-Public Use
  Company Number: None

PATIENT
  Age: 17 Year
  Sex: Male
  Weight: 58.9676 kg

DRUGS (6)
  1. ABILIFY [Concomitant]
  2. PROZAC [Suspect]
     Dates: start: 19990101
  3. HALDOL [Concomitant]
  4. ST. JOHN'S WORT [Suspect]
  5. PROZAC [Concomitant]
  6. ZYPREXA [Concomitant]

REACTIONS (5)
  - SUICIDE ATTEMPT [None]
  - CATATONIA [None]
  - INTENTIONAL OVERDOSE [None]
  - DEPRESSED MOOD [None]
  - FEAR [None]
